FAERS Safety Report 8934987 (Version 1)
Quarter: 2012Q4

REPORT INFORMATION
  Report Type: 
  Country: US (occurrence: US)
  Receive Date: 20121129
  Receipt Date: 20121129
  Transmission Date: 20130627
  Serious: Yes (Other)
  Sender: FDA-Public Use
  Company Number: US-009507513-1211USA010357

PATIENT
  Sex: Male

DRUGS (1)
  1. CORICIDIN HBP COUGH AND COLD [Suspect]
     Indication: PRODUCT USED FOR UNKNOWN INDICATION
     Dosage: 36 mg, Unknown
     Route: 048
     Dates: start: 20121114

REACTIONS (9)
  - Hallucination [Recovering/Resolving]
  - Feeling abnormal [Recovering/Resolving]
  - Fear [Recovering/Resolving]
  - Mobility decreased [Recovering/Resolving]
  - Illusion [Recovering/Resolving]
  - Hyperhidrosis [Recovering/Resolving]
  - Aphagia [Recovering/Resolving]
  - Overdose [Unknown]
  - Toothache [Recovering/Resolving]
